FAERS Safety Report 9919771 (Version 1)
Quarter: 2014Q1

REPORT INFORMATION
  Report Type: Spontaneous
  Country: US (occurrence: US)
  Receive Date: 20140224
  Receipt Date: 20140224
  Transmission Date: 20141002
  Serious: No
  Sender: FDA-Public Use
  Company Number: US-PFIZER INC-2014049891

PATIENT
  Age: 60 Year
  Sex: Male

DRUGS (2)
  1. SOMAVERT [Suspect]
     Dosage: 20 UG, UNK
     Dates: start: 201011, end: 20121201
  2. SOMAVERT [Suspect]
     Dosage: 10 UG, UNK
     Dates: start: 20101001

REACTIONS (1)
  - Drug ineffective [Unknown]
